FAERS Safety Report 25438127 (Version 2)
Quarter: 2025Q3

REPORT INFORMATION
  Report Type: Report from Study
  Country: US (occurrence: US)
  Receive Date: 20250616
  Receipt Date: 20250711
  Transmission Date: 20251020
  Serious: No
  Sender: AMGEN
  Company Number: US-AMGEN-USASP2025113987

PATIENT
  Sex: Female

DRUGS (1)
  1. PROLIA [Suspect]
     Active Substance: DENOSUMAB
     Indication: Product used for unknown indication
     Route: 065

REACTIONS (8)
  - Blood cholesterol increased [Unknown]
  - Fear of injection [Unknown]
  - Wrist fracture [Unknown]
  - Foot fracture [Unknown]
  - Feeling abnormal [Unknown]
  - Arthropathy [Unknown]
  - Lipoprotein (a) increased [Unknown]
  - Low density lipoprotein increased [Unknown]
